FAERS Safety Report 12710308 (Version 1)
Quarter: 2016Q3

REPORT INFORMATION
  Report Type: Spontaneous
  Country: CN (occurrence: CN)
  Receive Date: 20160902
  Receipt Date: 20160902
  Transmission Date: 20161109
  Serious: Yes (Hospitalization, Other)
  Sender: FDA-Public Use
  Company Number: CN-PFIZER INC-2016400983

PATIENT
  Age: 47 Year
  Sex: Female
  Weight: 69.5 kg

DRUGS (8)
  1. DEXAMETHASONE SODIUM PHOSPHATE. [Concomitant]
     Active Substance: DEXAMETHASONE SODIUM PHOSPHATE
     Indication: HYPERSENSITIVITY
     Dosage: 10 MG, 1X/DAY
     Route: 042
     Dates: start: 20160426, end: 20160427
  2. ONDANSETRON HYDROCHLORIDE. [Concomitant]
     Active Substance: ONDANSETRON HYDROCHLORIDE
     Indication: VOMITING
     Dosage: 8 MG, 2X/DAY
     Route: 041
     Dates: start: 20160425, end: 20160429
  3. DOCETAXEL. [Concomitant]
     Active Substance: DOCETAXEL
     Indication: BREAST CANCER
     Dosage: 120 MG, 1X/DAY
     Route: 041
     Dates: start: 20160427, end: 20160427
  4. CYCLOPHOSPHAMIDE. [Concomitant]
     Active Substance: CYCLOPHOSPHAMIDE
     Indication: BREAST CANCER
     Dosage: 0.8 G, 1X/DAY
     Route: 041
     Dates: start: 20160426, end: 20160426
  5. DEXRAZOXANE. [Concomitant]
     Active Substance: DEXRAZOXANE
     Indication: DRUG THERAPY
     Dosage: 1250 MG, 1X/DAY
     Dates: start: 20160426, end: 20160426
  6. PHARMORUBICIN [Suspect]
     Active Substance: EPIRUBICIN
     Indication: BREAST CANCER
     Dosage: 120 MG, 1X/DAY
     Route: 041
     Dates: start: 20160426, end: 20160426
  7. LANSOPRAZOLE. [Concomitant]
     Active Substance: LANSOPRAZOLE
     Indication: ABDOMINAL DISCOMFORT
     Dosage: 30 MG, 1X/DAY
     Route: 041
     Dates: start: 20160425, end: 20160429
  8. PROMETHAZINE HYDROCHLORIDE. [Concomitant]
     Active Substance: PROMETHAZINE HYDROCHLORIDE
     Indication: VOMITING
     Dosage: 25 MG, 1X/DAY
     Route: 030
     Dates: start: 20160426, end: 20160427

REACTIONS (17)
  - Productive cough [Unknown]
  - Bone marrow failure [Recovering/Resolving]
  - Chest discomfort [Unknown]
  - Chest pain [Unknown]
  - Gastroenteritis [Recovering/Resolving]
  - Pyrexia [Recovering/Resolving]
  - Decreased appetite [Recovered/Resolved]
  - Alopecia [Unknown]
  - Chromaturia [Unknown]
  - Bone pain [Unknown]
  - Diarrhoea [Recovering/Resolving]
  - Nausea [Unknown]
  - Vomiting [Unknown]
  - Ocular icterus [Unknown]
  - Hepatic pain [Unknown]
  - Abdominal distension [Recovering/Resolving]
  - Fatigue [Unknown]

NARRATIVE: CASE EVENT DATE: 20160501
